FAERS Safety Report 5273605-6 (Version None)
Quarter: 2007Q1

REPORT INFORMATION
  Report Type: 
  Country: None (occurrence: None)
  Receive Date: 20061219
  Receipt Date: 20060831
  Transmission Date: 20070707
  Serious: Yes (Other)
  Sender: FDA-Public Use
  Company Number: US-JNJFOC-20060605501

PATIENT
  Age: 24 Year
  Sex: Female
  Weight: 131.5431 kg

DRUGS (6)
  1. ORTHO EVRA [Suspect]
     Indication: CONTRACEPTION
     Dosage: 1 PATCH EVERY 1 WEEK FOR 3 WEEKS THEN OFF 1 WEEK
     Dates: start: 20030201
  2. PREDNISONE [Concomitant]
  3. LISINOPRIL [Concomitant]
  4. LASIX [Concomitant]
  5. K-DUR 10 [Concomitant]
  6. DIOVAN HCT (CO-DIOVAN) [Concomitant]

REACTIONS (1)
  - DEEP VEIN THROMBOSIS [None]
